FAERS Safety Report 8607670 (Version 2)
Quarter: 2013Q1

REPORT INFORMATION
  Report Type: Spontaneous
  Country: AU (occurrence: AU)
  Receive Date: 20120611
  Receipt Date: 20130213
  Transmission Date: 20140127
  Serious: Yes (Other)
  Sender: FDA-Public Use
  Company Number: AU-JNJFOC-20110904842

PATIENT
  Sex: Female

DRUGS (15)
  1. STELARA [Suspect]
     Indication: PSORIASIS
     Route: 058
     Dates: start: 20110410, end: 20110410
  2. STELARA [Suspect]
     Indication: PSORIASIS
     Route: 058
     Dates: start: 20110602, end: 20110602
  3. STELARA [Suspect]
     Indication: PSORIASIS
     Route: 058
     Dates: start: 20120627, end: 20120627
  4. STELARA [Suspect]
     Indication: PSORIASIS
     Route: 058
     Dates: start: 20120725, end: 20120725
  5. STELARA [Suspect]
     Indication: PSORIASIS
     Route: 058
     Dates: start: 20101216, end: 20101216
  6. STELARA [Suspect]
     Indication: PSORIASIS
     Route: 058
     Dates: start: 20100923, end: 20100923
  7. STELARA [Suspect]
     Indication: PSORIASIS
     Route: 058
     Dates: start: 20100701, end: 20100701
  8. STELARA [Suspect]
     Indication: PSORIASIS
     Route: 058
     Dates: start: 20100601, end: 20100601
  9. STELARA [Suspect]
     Indication: PSORIASIS
     Route: 058
     Dates: start: 20121016, end: 20121016
  10. STELARA [Suspect]
     Indication: PSORIASIS
     Route: 058
     Dates: start: 20120108, end: 20130108
  11. CONTRACEPTIVE [Concomitant]
     Route: 065
  12. PREDNISOLONE [Concomitant]
     Route: 065
  13. METHOTREXATE [Concomitant]
     Route: 065
  14. FOLIC ACID [Concomitant]
     Route: 065
  15. MOBIC [Concomitant]
     Route: 065

REACTIONS (4)
  - Premature delivery [Recovered/Resolved]
  - Pericardial effusion [Recovered/Resolved]
  - Pericarditis [Recovered/Resolved]
  - Exposure during pregnancy [Unknown]
